FAERS Safety Report 6456759-5 (Version None)
Quarter: 2009Q4

REPORT INFORMATION
  Report Type: 
  Country: None (occurrence: None)
  Receive Date: 20091124
  Receipt Date: 20091124
  Transmission Date: 20100525
  Serious: Yes (Life-Threatening, Other)
  Sender: FDA-Public Use
  Company Number: None

PATIENT
  Age: 22 Year
  Sex: Female
  Weight: 42.1845 kg

DRUGS (2)
  1. VALIUM [Suspect]
     Indication: ANXIETY
     Dosage: 10 MG DAILY PO
     Route: 048
  2. NODOZ [Suspect]

REACTIONS (4)
  - DEPRESSED LEVEL OF CONSCIOUSNESS [None]
  - DREAMY STATE [None]
  - FEELING ABNORMAL [None]
  - NERVOUSNESS [None]
